FAERS Safety Report 6693795-8 (Version None)
Quarter: 2010Q2

REPORT INFORMATION
  Report Type: 
  Country: None (occurrence: None)
  Receive Date: 20100423
  Receipt Date: 20100413
  Transmission Date: 20101027
  Serious: Yes (Other)
  Sender: FDA-Public Use
  Company Number: CO-PFIZER INC-2010049188

PATIENT
  Age: 45 Year
  Sex: Female
  Weight: 50 kg

DRUGS (1)
  1. ECALTA [Suspect]
     Indication: OESOPHAGEAL CANDIDIASIS
     Dosage: 200 MG, 1X/DAY
     Route: 042
     Dates: start: 20100326, end: 20100326

REACTIONS (3)
  - MEDICATION ERROR [None]
  - RASH [None]
  - TACHYCARDIA [None]
